FAERS Safety Report 19389574 (Version 1)
Quarter: 2021Q2

REPORT INFORMATION
  Report Type: Spontaneous
  Country: SB (occurrence: SB)
  Receive Date: 20210608
  Receipt Date: 20210608
  Transmission Date: 20210717
  Serious: Yes (Death, Other)
  Sender: FDA-Public Use
  Company Number: NVSC2021SB128490

PATIENT
  Age: 52 Year
  Sex: Female

DRUGS (1)
  1. GLIVEC [Suspect]
     Active Substance: IMATINIB MESYLATE
     Indication: CHRONIC MYELOID LEUKAEMIA
     Dosage: 400 MG(4*100MG)
     Route: 065

REACTIONS (3)
  - Death [Fatal]
  - Depression [Unknown]
  - Anaemia [Unknown]

NARRATIVE: CASE EVENT DATE: 20210514
